FAERS Safety Report 4506989-4 (Version None)
Quarter: 2004Q4

REPORT INFORMATION
  Report Type: 
  Country: None (occurrence: None)
  Receive Date: 20041117
  Receipt Date: 20041108
  Transmission Date: 20050328
  Serious: Yes (Hospitalization)
  Sender: FDA-Public Use
  Company Number: HQWYE310809NOV04

PATIENT
  Sex: Male

DRUGS (1)
  1. CORDARONE [Suspect]
     Indication: ARRHYTHMIA
     Dosage: 100-200 MG DAILY ORAL
     Route: 048

REACTIONS (3)
  - CARDIAC FIBRILLATION [None]
  - PNEUMONIA [None]
  - PULMONARY FIBROSIS [None]
